FAERS Safety Report 10187392 (Version 2)
Quarter: 2014Q2

REPORT INFORMATION
  Report Type: Spontaneous
  Country: US (occurrence: US)
  Receive Date: 20140522
  Receipt Date: 20140530
  Transmission Date: 20141212
  Serious: Yes (Other)
  Sender: FDA-Public Use
  Company Number: US-RB-066089-14

PATIENT
  Age: 14 Year
  Sex: Female

DRUGS (6)
  1. MUCINEX FAST MAX LIQUID SEVERE COLD (ACETAMINOPHEN) [Suspect]
     Indication: COUGH
     Route: 048
     Dates: start: 20140514
  2. MUCINEX FAST MAX LIQUID SEVERE COLD (DEXTROMETHORPHAN HYDROBROMIDE) [Suspect]
  3. MUCINEX FAST MAX LIQUID SEVERE COLD (GUAIFENESIN) [Suspect]
  4. MUCINEX FAST MAX LIQUID SEVERE COLD (PHENYLEPHRINE HYDROCHLORIDE) [Suspect]
  5. MUCINEX NIGHT TIME VERSION COLD AND FLU [Suspect]
     Indication: COUGH
     Dates: start: 20140513
  6. ALBUTEROL [Concomitant]
     Indication: PRODUCT USED FOR UNKNOWN INDICATION

REACTIONS (6)
  - Wheezing [Recovered/Resolved]
  - Disorientation [Recovered/Resolved]
  - Tremor [Recovered/Resolved]
  - Skin tightness [Recovered/Resolved]
  - Expired product administered [Recovered/Resolved]
  - Headache [Recovered/Resolved]
